FAERS Safety Report 19141668 (Version 2)
Quarter: 2021Q2

REPORT INFORMATION
  Report Type: Report from Study
  Country: US (occurrence: US)
  Receive Date: 20210415
  Receipt Date: 20210416
  Transmission Date: 20210717
  Serious: Yes (Hospitalization)
  Sender: FDA-Public Use
  Company Number: US-CELGENEUS-USA-20210402132

PATIENT
  Age: 76 Year
  Sex: Female
  Weight: 59.3 kg

DRUGS (2)
  1. ENASIDENIB [Suspect]
     Active Substance: ENASIDENIB
     Indication: MYELODYSPLASTIC SYNDROME
     Route: 048
  2. AZACITIDINE. [Suspect]
     Active Substance: AZACITIDINE
     Indication: MYELODYSPLASTIC SYNDROME
     Dosage: 140 MILLIGRAM
     Route: 041
     Dates: start: 20210406, end: 20210406

REACTIONS (3)
  - Febrile neutropenia [Unknown]
  - Syncope [Unknown]
  - Differentiation syndrome [Unknown]

NARRATIVE: CASE EVENT DATE: 20210407
